FAERS Safety Report 7049798-7 (Version None)
Quarter: 2010Q4

REPORT INFORMATION
  Report Type: 
  Country: None (occurrence: None)
  Receive Date: 20101018
  Receipt Date: 20100913
  Transmission Date: 20110411
  Serious: Yes (Hospitalization, Other)
  Sender: FDA-Public Use
  Company Number: US-BAYER-201025707NA

PATIENT
  Age: 31 Year
  Sex: Female
  Weight: 61 kg

DRUGS (3)
  1. YAZ [Suspect]
     Indication: CONTRACEPTION
     Route: 048
     Dates: start: 20070601, end: 20090801
  2. PHENERGAN [Concomitant]
  3. PROTONIX [Concomitant]
     Route: 048

REACTIONS (11)
  - ABDOMINAL DISTENSION [None]
  - ABDOMINAL PAIN [None]
  - ABDOMINAL PAIN UPPER [None]
  - APPETITE DISORDER [None]
  - DECREASED APPETITE [None]
  - ERUCTATION [None]
  - FAT INTOLERANCE [None]
  - GALLBLADDER DISORDER [None]
  - NAUSEA [None]
  - PAIN [None]
  - VOMITING [None]
